FAERS Safety Report 5596536-0 (Version None)
Quarter: 2008Q1

REPORT INFORMATION
  Report Type: 
  Country: None (occurrence: None)
  Receive Date: 20080118
  Receipt Date: 20080108
  Transmission Date: 20080703
  Serious: Yes (Hospitalization)
  Sender: FDA-Public Use
  Company Number: US-GILEAD-2008-0014873

PATIENT
  Sex: Male
  Weight: 92.162 kg

DRUGS (13)
  1. AMBRISENTAN [Suspect]
     Indication: PULMONARY HYPERTENSION
     Dates: start: 20071219, end: 20080116
  2. SILDENAFIL CITRATE [Concomitant]
  3. REMODULIN [Concomitant]
     Route: 042
  4. TRAZODONE HCL [Concomitant]
  5. LASIX [Concomitant]
  6. LOPERAMIDE HCL [Concomitant]
     Dates: start: 20071001
  7. SPIRONOLACTONE [Concomitant]
     Dates: start: 20061201
  8. METFORMIN HCL [Concomitant]
     Dates: start: 19940101
  9. WARFARIN SODIUM [Concomitant]
     Dates: start: 20061201
  10. GLYBURIDE [Concomitant]
     Dates: start: 19930101
  11. IRON SUPPLEMENT [Concomitant]
     Dates: start: 20070801
  12. SILVER CENTRUM MULTIVITAMIN [Concomitant]
     Dates: start: 20070901
  13. OXYGEN [Concomitant]
     Dates: start: 20061201

REACTIONS (2)
  - BRONCHITIS [None]
  - FLUID OVERLOAD [None]
